FAERS Safety Report 16206015 (Version 1)
Quarter: 2019Q2

REPORT INFORMATION
  Report Type: Spontaneous
  Country: CA (occurrence: CA)
  Receive Date: 20190417
  Receipt Date: 20190417
  Transmission Date: 20190711
  Serious: Yes (Other)
  Sender: FDA-Public Use
  Company Number: CA-ORION CORPORATION ORION PHARMA-TREX2018-3172

PATIENT
  Age: 60 Year
  Sex: Female

DRUGS (2)
  1. METHOTREXATE (TRADE NAME UNKNOWN) [Suspect]
     Active Substance: METHOTREXATE
     Route: 048
     Dates: end: 20170926
  2. METHOTREXATE (TRADE NAME UNKNOWN) [Suspect]
     Active Substance: METHOTREXATE
     Indication: PRODUCT USED FOR UNKNOWN INDICATION
     Route: 065
     Dates: start: 201412, end: 201611

REACTIONS (9)
  - Arthralgia [Unknown]
  - Tendonitis [Unknown]
  - Bone marrow failure [Not Recovered/Not Resolved]
  - Nausea [Unknown]
  - Renal impairment [Unknown]
  - Cough [Unknown]
  - Pancytopenia [Unknown]
  - Musculoskeletal pain [Unknown]
  - Insomnia [Unknown]
